FAERS Safety Report 14705048 (Version 3)
Quarter: 2020Q4

REPORT INFORMATION
  Report Type: Report from Study
  Country: CO (occurrence: CO)
  Receive Date: 20180402
  Receipt Date: 20201106
  Transmission Date: 20210113
  Serious: Yes (Hospitalization, Other)
  Sender: FDA-Public Use
  Company Number: CO-ASTELLAS-2018US015900

PATIENT
  Age: 46 Year
  Sex: Female
  Weight: 55 kg

DRUGS (3)
  1. AZATHIOPRINE. [Suspect]
     Active Substance: AZATHIOPRINE
     Indication: TRANSPLANT
     Route: 048
     Dates: start: 20141008
  2. PREDNISOLONE. [Suspect]
     Active Substance: PREDNISOLONE
     Indication: TRANSPLANT
     Dosage: 10 MG, ONCE DAILY (EVERY 24 HOUR)
     Route: 048
     Dates: start: 20141008
  3. TACROLIMUS. [Suspect]
     Active Substance: TACROLIMUS
     Indication: RENAL TRANSPLANT
     Route: 048
     Dates: start: 20141008

REACTIONS (15)
  - Renal artery occlusion [Recovered/Resolved]
  - Anaemia [Recovering/Resolving]
  - Haemoglobin decreased [Recovering/Resolving]
  - Haematoma [Recovered/Resolved]
  - Head injury [Recovered/Resolved]
  - Blood creatinine abnormal [Recovered/Resolved]
  - Pain in extremity [Unknown]
  - Kidney transplant rejection [Recovered/Resolved]
  - Lower limb fracture [Unknown]
  - Ulcer [Recovered/Resolved]
  - Fall [Recovered/Resolved]
  - Injury [Recovered/Resolved]
  - Helicobacter infection [Unknown]
  - Accident at work [Unknown]
  - Blood creatinine abnormal [Recovered/Resolved]

NARRATIVE: CASE EVENT DATE: 201504
